FAERS Safety Report 26170624 (Version 1)
Quarter: 2025Q4

REPORT INFORMATION
  Report Type: Spontaneous
  Country: US (occurrence: US)
  Receive Date: 20251217
  Receipt Date: 20251217
  Transmission Date: 20260119
  Serious: Yes (Other)
  Sender: DR REDDYS
  Company Number: None

PATIENT
  Age: 56 Year
  Sex: Male

DRUGS (7)
  1. DOXYCYCLINE [Suspect]
     Active Substance: DOXYCYCLINE
     Indication: Fatigue
  2. DOXYCYCLINE [Suspect]
     Active Substance: DOXYCYCLINE
     Indication: Malaise
  3. DOXYCYCLINE [Suspect]
     Active Substance: DOXYCYCLINE
     Indication: Productive cough
  4. PREDNISONE [Concomitant]
     Active Substance: PREDNISONE
     Indication: Fatigue
  5. PREDNISONE [Concomitant]
     Active Substance: PREDNISONE
     Indication: Malaise
  6. PREDNISONE [Concomitant]
     Active Substance: PREDNISONE
     Indication: Productive cough
  7. ALLOPURINOL [Concomitant]
     Active Substance: ALLOPURINOL
     Indication: Gout
     Dates: start: 2021

REACTIONS (1)
  - Drug reaction with eosinophilia and systemic symptoms [Unknown]
